FAERS Safety Report 4353864-4 (Version None)
Quarter: 2004Q2

REPORT INFORMATION
  Report Type: 
  Country: None (occurrence: None)
  Receive Date: 20040503
  Receipt Date: 20040426
  Transmission Date: 20050107
  Serious: Yes (Hospitalization)
  Sender: FDA-Public Use
  Company Number: 200411169GDS

PATIENT
  Age: 71 Year
  Sex: Female

DRUGS (12)
  1. ASPIRIN [Suspect]
     Indication: PROPHYLAXIS
     Dosage: 100 MG, TOTAL DAILY, ORAL
     Route: 048
     Dates: end: 20040219
  2. ASPIRIN [Suspect]
     Indication: PROPHYLAXIS
     Dosage: 100 MG, TOTAL DAILY, ORAL
     Route: 048
     Dates: start: 20040229
  3. PAROXETINE HCL [Suspect]
     Indication: DEPRESSION
     Dosage: 20 MG, TOTAL DAILY, ORAL
     Route: 048
  4. PLAVIX [Suspect]
     Indication: PROPHYLAXIS
     Dosage: 75 MG, TOTAL DALY, ORAL
     Route: 048
     Dates: end: 20040219
  5. PANTOZOL [Concomitant]
  6. DAFALGAN [Concomitant]
  7. NORVASC [Concomitant]
  8. RENITEN [Concomitant]
  9. SERESTA [Concomitant]
  10. METOPROLOL SUCCINATE [Concomitant]
  11. DISTRANEURIN [Concomitant]
  12. ARTHROTEC [Concomitant]

REACTIONS (12)
  - ASTHENIA [None]
  - BLADDER DILATATION [None]
  - BLOOD CREATINE PHOSPHOKINASE INCREASED [None]
  - CHEST INJURY [None]
  - CHEST PAIN [None]
  - DYSAESTHESIA [None]
  - DYSSTASIA [None]
  - FALL [None]
  - PARAESTHESIA [None]
  - SPINAL CORD COMPRESSION [None]
  - SUBDURAL HAEMATOMA [None]
  - TROPONIN INCREASED [None]
